FAERS Safety Report 7788471-4 (Version None)
Quarter: 2011Q3

REPORT INFORMATION
  Report Type: 
  Country: None (occurrence: None)
  Receive Date: 20110927
  Receipt Date: 20110914
  Transmission Date: 20111222
  Serious: Yes (Hospitalization, Other)
  Sender: FDA-Public Use
  Company Number: 2011SP043817

PATIENT
  Sex: Male

DRUGS (3)
  1. RIBAVIRIN [Suspect]
     Indication: HEPATITIS C
     Dates: start: 20110624
  2. TELAPRIVIR [Suspect]
     Indication: HEPATITIS C
     Dates: start: 20110624
  3. PEG-INTRON [Suspect]
     Indication: HEPATITIS C

REACTIONS (5)
  - JOINT SWELLING [None]
  - PNEUMONIA [None]
  - HAEMATOCHEZIA [None]
  - HAEMOGLOBIN DECREASED [None]
  - OEDEMA PERIPHERAL [None]
